FAERS Safety Report 16723130 (Version 1)
Quarter: 2019Q3

REPORT INFORMATION
  Report Type: Spontaneous
  Country: US (occurrence: US)
  Receive Date: 20190821
  Receipt Date: 20190821
  Transmission Date: 20191005
  Serious: Yes (Other)
  Sender: FDA-Public Use
  Company Number: US-BIOGEN-2019BI00738210

PATIENT
  Sex: Female

DRUGS (1)
  1. TYSABRI [Suspect]
     Active Substance: NATALIZUMAB
     Indication: MULTIPLE SCLEROSIS
     Route: 042
     Dates: start: 20181015, end: 20190218

REACTIONS (14)
  - Grip strength decreased [Unknown]
  - Cyst [Not Recovered/Not Resolved]
  - Paraesthesia [Unknown]
  - Fall [Recovered/Resolved]
  - Paraesthesia oral [Unknown]
  - Fractured coccyx [Recovered/Resolved]
  - Hypoaesthesia [Unknown]
  - Pain in extremity [Not Recovered/Not Resolved]
  - Disorientation [Unknown]
  - Bladder disorder [Unknown]
  - Seizure [Unknown]
  - Loss of consciousness [Unknown]
  - Visual impairment [Unknown]
  - Foot fracture [Not Recovered/Not Resolved]

NARRATIVE: CASE EVENT DATE: 2019
